FAERS Safety Report 6497906-9 (Version None)
Quarter: 2009Q4

REPORT INFORMATION
  Report Type: 
  Country: None (occurrence: None)
  Receive Date: 20091215
  Receipt Date: 20091203
  Transmission Date: 20100525
  Serious: Yes (Other)
  Sender: FDA-Public Use
  Company Number: US-PFIZER INC-2009306123

PATIENT
  Sex: Male

DRUGS (1)
  1. VFEND [Suspect]
     Dosage: 200 MG, 2X/DAY

REACTIONS (5)
  - DELUSION [None]
  - HALLUCINATION [None]
  - HALLUCINATION, VISUAL [None]
  - NAUSEA [None]
  - VISUAL IMPAIRMENT [None]
